FAERS Safety Report 4747284-8 (Version None)
Quarter: 2005Q3

REPORT INFORMATION
  Report Type: 
  Country: None (occurrence: None)
  Receive Date: 20050817
  Receipt Date: 20050114
  Transmission Date: 20060218
  Serious: Yes (Other)
  Sender: FDA-Public Use
  Company Number: TW-MERCK-0501USA02729

PATIENT
  Age: 7 Year
  Sex: Female

DRUGS (8)
  1. ELSPAR [Suspect]
     Indication: ACUTE LYMPHOCYTIC LEUKAEMIA
     Route: 030
     Dates: start: 19930223, end: 19930309
  2. ELSPAR [Suspect]
     Route: 030
     Dates: start: 19930407, end: 19930101
  3. VINCRISTINE SULFATE [Concomitant]
     Indication: ACUTE LYMPHOCYTIC LEUKAEMIA
     Route: 042
     Dates: start: 19930223, end: 19930309
  4. VINCRISTINE SULFATE [Concomitant]
     Route: 042
     Dates: start: 19930407, end: 19930101
  5. PREDNISOLONE [Concomitant]
     Indication: ACUTE LYMPHOCYTIC LEUKAEMIA
     Route: 048
     Dates: start: 19930223
  6. CEFAZOLIN [Concomitant]
     Route: 065
     Dates: start: 19930223
  7. PIPERACILLIN [Concomitant]
     Route: 065
     Dates: start: 19930223
  8. AMIKACIN [Concomitant]
     Route: 065

REACTIONS (6)
  - CANDIDIASIS [None]
  - LEUKAEMIC INFILTRATION HEPATIC [None]
  - PANCREATIC PSEUDOCYST [None]
  - PANCREATITIS ACUTE [None]
  - PERITONITIS [None]
  - PYREXIA [None]
